FAERS Safety Report 17175107 (Version 1)
Quarter: 2019Q4

REPORT INFORMATION
  Report Type: Spontaneous
  Country: US (occurrence: US)
  Receive Date: 20191219
  Receipt Date: 20191219
  Transmission Date: 20200122
  Serious: No
  Sender: FDA-Public Use
  Company Number: US-UCBSA-120220

PATIENT
  Sex: Female

DRUGS (4)
  1. ONDANSETRON [Concomitant]
     Active Substance: ONDANSETRON
     Indication: PRODUCT USED FOR UNKNOWN INDICATION
     Dosage: 4 MG, AS NEEDED
  2. CIMZIA [Suspect]
     Active Substance: CERTOLIZUMAB PEGOL
     Indication: CROHN^S DISEASE
     Dosage: 400 MG, MONTHLY (QM)
     Route: 058
     Dates: start: 20110209
  3. VALACYCLOVIR HYDROCHLORIDE. [Concomitant]
     Active Substance: VALACYCLOVIR HYDROCHLORIDE
     Indication: HERPES SIMPLEX
     Dosage: 500 MG, ONCE DAILY (QD)
     Route: 048
     Dates: start: 20120516
  4. ACYCLOVIR. [Concomitant]
     Active Substance: ACYCLOVIR
     Indication: HERPES VIRUS INFECTION

REACTIONS (1)
  - Maternal exposure during pregnancy [Unknown]
